FAERS Safety Report 4276607-1 (Version None)
Quarter: 2004Q1

REPORT INFORMATION
  Report Type: 
  Country: None (occurrence: None)
  Receive Date: 20040120
  Receipt Date: 20040108
  Transmission Date: 20041129
  Serious: Yes (Other)
  Sender: FDA-Public Use
  Company Number: US-JNJFOC-20040101867

PATIENT
  Age: 75 Year
  Sex: Female
  Weight: 72.5755 kg

DRUGS (11)
  1. DITROPAN [Suspect]
     Indication: HYPERTONIC BLADDER
     Dosage: 5 MG
  2. LIPITOR [Concomitant]
  3. SYNTHROID [Concomitant]
  4. LISINOPRIL [Concomitant]
  5. FUROSEMIDE [Concomitant]
  6. POTASSIUM (POTASSIUM) [Concomitant]
  7. CLONIDINE [Concomitant]
  8. ASPIRIN [Concomitant]
  9. PLAVIX [Concomitant]
  10. OXAZEPAM [Concomitant]
  11. LEXAPRO (ALL OTHER THERAPEUTIC PRODUCTS) [Concomitant]

REACTIONS (2)
  - CYSTITIS [None]
  - MYOCARDIAL INFARCTION [None]
